FAERS Safety Report 8165177-3 (Version None)
Quarter: 2012Q1

REPORT INFORMATION
  Report Type: 
  Country: None (occurrence: None)
  Receive Date: 20120227
  Receipt Date: 20120221
  Transmission Date: 20120608
  Serious: Yes (Disabling, Other)
  Sender: FDA-Public Use
  Company Number: US-PFIZER INC-2012046187

PATIENT
  Sex: Male
  Weight: 74.83 kg

DRUGS (4)
  1. DILANTIN [Suspect]
     Indication: EPILEPSY
     Dosage: 200MG IN MORNING AND 300MG AT NIGHT
     Route: 048
  2. PROZAC [Concomitant]
     Dosage: UNK
  3. KEPPRA [Concomitant]
     Dosage: UNK
  4. DEPAKOTE [Concomitant]
     Dosage: UNK

REACTIONS (2)
  - LOWER LIMB FRACTURE [None]
  - ABASIA [None]
